FAERS Safety Report 7543304-6 (Version None)
Quarter: 2011Q2

REPORT INFORMATION
  Report Type: 
  Country: None (occurrence: None)
  Receive Date: 20110602
  Receipt Date: 20110525
  Transmission Date: 20111010
  Serious: Yes (Hospitalization)
  Sender: FDA-Public Use
  Company Number: 2011028715

PATIENT
  Age: 59 Year
  Sex: Female
  Weight: 97.977 kg

DRUGS (16)
  1. HIZENTRA [Suspect]
     Indication: IMMUNODEFICIENCY COMMON VARIABLE
     Dosage: SEE IMAGE
     Route: 058
     Dates: start: 20110307
  2. ALTACE [Concomitant]
  3. SYMBICORT [Concomitant]
  4. NASACORT [Concomitant]
  5. ASPIRIN [Concomitant]
  6. OMEGA-3 FISH OIL (OMEGA-3 MARINE TRIGLYCERIDES) [Concomitant]
  7. LANTUS [Concomitant]
  8. ZETIA [Concomitant]
  9. CO Q 10 (UBIDECARENON) [Concomitant]
  10. PREMARIN [Concomitant]
  11. HIZENTRA [Suspect]
  12. OMEPRAZOLE [Concomitant]
  13. PROVENTIL [Concomitant]
  14. SYNTHROID [Concomitant]
  15. GLIMEPIRIDE [Concomitant]
  16. SINGULAIR [Concomitant]

REACTIONS (4)
  - PARAESTHESIA [None]
  - TRANSIENT ISCHAEMIC ATTACK [None]
  - CHEST DISCOMFORT [None]
  - MUSCULOSKELETAL STIFFNESS [None]
